FAERS Safety Report 14843266 (Version 3)
Quarter: 2018Q2

REPORT INFORMATION
  Report Type: Spontaneous
  Country: US (occurrence: US)
  Receive Date: 20180503
  Receipt Date: 20180522
  Transmission Date: 20180711
  Serious: Yes (Hospitalization, Other)
  Sender: FDA-Public Use
  Company Number: US-PFIZER INC-2018176340

PATIENT
  Age: 64 Year
  Sex: Female
  Weight: 79 kg

DRUGS (6)
  1. LAMOTRIGINE. [Suspect]
     Active Substance: LAMOTRIGINE
     Dosage: UNK
     Route: 048
     Dates: start: 201206, end: 201212
  2. EFFEXOR XR [Suspect]
     Active Substance: VENLAFAXINE HYDROCHLORIDE
     Indication: DEPRESSION
     Dosage: 150 MG, TWICE DAILY
     Dates: start: 1990
  3. EFFEXOR XR [Suspect]
     Active Substance: VENLAFAXINE HYDROCHLORIDE
     Indication: ANXIETY
     Dosage: 150 MG (ONE CAPSULE)
  4. EFFEXOR XR [Suspect]
     Active Substance: VENLAFAXINE HYDROCHLORIDE
     Indication: AGORAPHOBIA
  5. DILANTIN [Concomitant]
     Active Substance: PHENYTOIN
     Dosage: UNK
  6. DICLOFENAC [Concomitant]
     Active Substance: DICLOFENAC
     Indication: ARTHRITIS
     Dosage: 75 MG, 2X/DAY

REACTIONS (10)
  - Depressed mood [Unknown]
  - Withdrawal syndrome [Unknown]
  - Serotonin syndrome [Unknown]
  - Crying [Unknown]
  - Fall [Unknown]
  - Prescribed overdose [Unknown]
  - Emotional disorder [Unknown]
  - Head injury [Unknown]
  - Dizziness [Unknown]
  - Intentional product misuse [Unknown]
